FAERS Safety Report 5875589-6 (Version None)
Quarter: 2008Q3

REPORT INFORMATION
  Report Type: 
  Country: None (occurrence: None)
  Receive Date: 20080909
  Receipt Date: 20080827
  Transmission Date: 20090109
  Serious: Yes (Hospitalization)
  Sender: FDA-Public Use
  Company Number: US-ELI_LILLY_AND_COMPANY-US200808005814

PATIENT
  Sex: Female

DRUGS (3)
  1. HUMULIN 70/30 [Suspect]
  2. HUMALOG [Suspect]
     Dates: start: 20070101
  3. LANTUS [Concomitant]
     Dosage: UNK, EACH EVENING

REACTIONS (3)
  - COLONOSCOPY [None]
  - LARGE INTESTINE PERFORATION [None]
  - MACULAR DEGENERATION [None]
